FAERS Safety Report 14832420 (Version 2)
Quarter: 2018Q2

REPORT INFORMATION
  Report Type: Spontaneous
  Country: US (occurrence: US)
  Receive Date: 20180501
  Receipt Date: 20180509
  Transmission Date: 20180711
  Serious: Yes (Hospitalization, Other)
  Sender: FDA-Public Use
  Company Number: US-ASTRAZENECA-2018SE55253

PATIENT
  Age: 90 Year
  Sex: Female

DRUGS (9)
  1. ARIMIDEX [Suspect]
     Active Substance: ANASTROZOLE
     Route: 048
  2. FASLODEX [Suspect]
     Active Substance: FULVESTRANT
     Route: 042
  3. IBRANCE [Suspect]
     Active Substance: PALBOCICLIB
     Route: 048
  4. IBRANCE [Suspect]
     Active Substance: PALBOCICLIB
     Route: 048
  5. AROMASIN [Suspect]
     Active Substance: EXEMESTANE
     Route: 065
  6. MEGACE [Suspect]
     Active Substance: MEGESTROL ACETATE
     Route: 065
  7. IBRANCE [Suspect]
     Active Substance: PALBOCICLIB
     Route: 048
  8. XGEVA [Concomitant]
     Active Substance: DENOSUMAB
  9. LETROZOLE. [Concomitant]
     Active Substance: LETROZOLE

REACTIONS (18)
  - Odynophagia [Unknown]
  - Anaemia [Not Recovered/Not Resolved]
  - White blood cell count decreased [Not Recovered/Not Resolved]
  - Bone cancer metastatic [Unknown]
  - Renal impairment [Unknown]
  - Dehydration [Unknown]
  - Headache [Unknown]
  - Myalgia [Unknown]
  - Oral mucosal blistering [Unknown]
  - Nausea [Unknown]
  - Weight decreased [Unknown]
  - Malignant neoplasm progression [Unknown]
  - Diarrhoea [Unknown]
  - Pneumonia [Unknown]
  - Oesophageal mucosal blister [Unknown]
  - Painful respiration [Unknown]
  - Dysphagia [Unknown]
  - Blister [Unknown]

NARRATIVE: CASE EVENT DATE: 2015
